FAERS Safety Report 5980307-7 (Version None)
Quarter: 2008Q4

REPORT INFORMATION
  Report Type: 
  Country: None (occurrence: None)
  Receive Date: 20081205
  Receipt Date: 20081201
  Transmission Date: 20090506
  Serious: Yes (Hospitalization, Other)
  Sender: FDA-Public Use
  Company Number: PHHY2008FR28356

PATIENT
  Sex: Female
  Weight: 65 kg

DRUGS (5)
  1. LIORESAL [Suspect]
     Indication: ALCOHOL WITHDRAWAL SYNDROME
     Dosage: 50 MG, QD
     Route: 048
     Dates: start: 20081024, end: 20081104
  2. AOTAL [Concomitant]
     Indication: ALCOHOL WITHDRAWAL SYNDROME
  3. SEROPRAM [Concomitant]
     Dosage: 2 DF, QD
     Route: 048
  4. IMOVANE [Concomitant]
     Dosage: 1 DF, QD
  5. ANXIOLYTICS [Concomitant]

REACTIONS (4)
  - CONFUSIONAL STATE [None]
  - INSOMNIA [None]
  - MANIA [None]
  - RESTLESSNESS [None]
